FAERS Safety Report 7513998-X (Version None)
Quarter: 2011Q2

REPORT INFORMATION
  Report Type: 
  Country: None (occurrence: None)
  Receive Date: 20110531
  Receipt Date: 20110523
  Transmission Date: 20111010
  Serious: Yes (Hospitalization, Other)
  Sender: FDA-Public Use
  Company Number: JP-BAYER-2011-044565

PATIENT
  Age: 88 Year
  Sex: Female

DRUGS (5)
  1. DIOVAN [Concomitant]
     Indication: HYPERTENSION
     Dosage: 160 MG, OM
     Route: 048
     Dates: start: 20100119
  2. CARVEDILOL [Concomitant]
     Indication: HYPERTENSION
     Dosage: 5 MG, OM
     Route: 048
     Dates: start: 20100202
  3. NATRIX [Concomitant]
     Indication: HYPERTENSION
     Dosage: 1 MG, OM
     Route: 048
  4. NIFEDIPINE [Suspect]
     Indication: HYPERTENSION
     Dosage: 20 MG, QD
     Route: 048
     Dates: start: 20100316, end: 20100322
  5. ASPIRIN [Concomitant]
     Dosage: DAILY DOSE 100 MG
     Route: 048

REACTIONS (2)
  - LOSS OF CONSCIOUSNESS [None]
  - HEADACHE [None]
